FAERS Safety Report 18734857 (Version 2)
Quarter: 2021Q1

REPORT INFORMATION
  Report Type: Report from Study
  Country: US (occurrence: US)
  Receive Date: 20210113
  Receipt Date: 20210226
  Transmission Date: 20210419
  Serious: Yes (Death, Hospitalization)
  Sender: FDA-Public Use
  Company Number: US-VIFOR (INTERNATIONAL) INC.-VIT-2021-00395

PATIENT
  Sex: Female
  Weight: 100.5 kg

DRUGS (4)
  1. VELPHORO [Suspect]
     Active Substance: SUCROFERRIC OXYHYDROXIDE
     Indication: CHRONIC KIDNEY DISEASE
     Route: 048
     Dates: start: 20200519
  2. VELPHORO [Suspect]
     Active Substance: SUCROFERRIC OXYHYDROXIDE
     Indication: BLOOD PHOSPHORUS INCREASED
  3. EPOGEN [Concomitant]
     Active Substance: ERYTHROPOIETIN
     Dates: start: 20200320, end: 20201219
  4. FERROUS SULFATE. [Concomitant]
     Active Substance: FERROUS SULFATE
     Dates: start: 20191116, end: 20201217

REACTIONS (2)
  - Unevaluable event [Fatal]
  - Abdominal wall wound [Fatal]

NARRATIVE: CASE EVENT DATE: 202101
